FAERS Safety Report 13401238 (Version 3)
Quarter: 2017Q2

REPORT INFORMATION
  Report Type: Spontaneous
  Country: JP (occurrence: JP)
  Receive Date: 20170404
  Receipt Date: 20170609
  Transmission Date: 20170830
  Serious: Yes (Hospitalization, Other)
  Sender: FDA-Public Use
  Company Number: JP-PFIZER INC-2017055075

PATIENT
  Age: 55 Year
  Sex: Male
  Weight: 40 kg

DRUGS (8)
  1. CELECOX [Suspect]
     Active Substance: CELECOXIB
     Indication: SPINAL OSTEOARTHRITIS
     Dosage: 100 MG, 2X/DAY
     Route: 048
     Dates: start: 20161003, end: 20170120
  2. MECOBALAMIN [Concomitant]
     Active Substance: METHYLCOBALAMIN
     Indication: ANAEMIA MACROCYTIC
     Dosage: 50 UG, 3X/DAY
     Route: 048
     Dates: end: 20170130
  3. LOXOPROFEN NA [Suspect]
     Active Substance: LOXOPROFEN SODIUM
     Indication: SPINAL OSTEOARTHRITIS
     Dosage: 100 MG, 1X/DAY
     Route: 061
     Dates: start: 20161003, end: 20170110
  4. FEBURIC [Concomitant]
     Active Substance: FEBUXOSTAT
     Indication: GOUT
     Dosage: 10 MG, 1X/DAY
     Route: 048
     Dates: start: 20170117, end: 20170123
  5. URINORM /00227201/ [Concomitant]
     Active Substance: BENZBROMARONE
     Indication: HYPERURICAEMIA
     Dosage: 25 MG, 3X/DAY
     Route: 048
     Dates: end: 20170130
  6. EVIPROSTAT [Concomitant]
     Active Substance: CHIMAPHILA UMBELLATA\MANGANESE CHLORIDE\POPULUS TREMULOIDES\SODIUM TAUROCHOLATE
     Indication: BENIGN PROSTATIC HYPERPLASIA
     Dosage: 1 DF, 3X/DAY
     Route: 048
     Dates: start: 20160624
  7. FOLIAMIN [Concomitant]
     Active Substance: FOLIC ACID
     Indication: ANAEMIA MACROCYTIC
     Dosage: 5 MG, 3X/DAY
     Route: 048
     Dates: end: 20170130
  8. TEPRENONE [Concomitant]
     Active Substance: TEPRENONE
     Indication: GASTRITIS PROPHYLAXIS
     Dosage: 50 MG, TWICE DAILY, AFTER BREAKFAST AND SUPPER
     Route: 048
     Dates: start: 20161003, end: 20170120

REACTIONS (3)
  - Off label use [Unknown]
  - Hypozincaemia [Recovered/Resolved]
  - Renal tubular necrosis [Recovered/Resolved]

NARRATIVE: CASE EVENT DATE: 20161003
